FAERS Safety Report 9066038 (Version 1)
Quarter: 2013Q1

REPORT INFORMATION
  Report Type: Spontaneous
  Country: GB (occurrence: GB)
  Receive Date: 20130202
  Receipt Date: 20130202
  Transmission Date: 20140127
  Serious: Yes (Life-Threatening)
  Sender: FDA-Public Use
  Company Number: GB-AMGEN-GBRSP2013006841

PATIENT
  Age: 54 Year
  Sex: Female
  Weight: 66 kg

DRUGS (6)
  1. PEGFILGRASTIM [Suspect]
     Indication: PROPHYLAXIS
     Dosage: 6 MG, 24 HOURS AFTER CHEMO
     Route: 058
     Dates: start: 20130123, end: 20130123
  2. CHEMOTHERAPEUTICS [Concomitant]
     Indication: BREAST CANCER
  3. TRASTUZUMAB [Concomitant]
     Indication: BREAST CANCER
  4. DEXAMETHASONE [Concomitant]
     Dosage: 8 MG, UNK
     Route: 065
     Dates: start: 20130122
  5. ONDANSETRON [Concomitant]
     Dosage: 16 MG, UNK
     Route: 065
     Dates: start: 20130122
  6. DOMPERIDONE [Concomitant]
     Dosage: 10 MG, UNK
     Route: 065
     Dates: start: 20130122

REACTIONS (1)
  - Anaphylactic reaction [Recovered/Resolved]
